FAERS Safety Report 13362102 (Version 1)
Quarter: 2017Q1

REPORT INFORMATION
  Report Type: Spontaneous
  Country: US (occurrence: US)
  Receive Date: 20170323
  Receipt Date: 20170323
  Transmission Date: 20170429
  Serious: Yes (Other)
  Sender: FDA-Public Use
  Company Number: US-FRESENIUS KABI-FK201702314

PATIENT
  Age: 93 Year
  Sex: Male

DRUGS (3)
  1. BUPIVACAINE W/EPINEPHRINE (MANUFACTURER UNKNOWN) [Suspect]
     Active Substance: BUPIVACAINE HYDROCHLORIDE\EPINEPHRINE
     Indication: SPINAL ANAESTHESIA
     Route: 024
  2. MIDAZOLAM [Concomitant]
     Active Substance: MIDAZOLAM HYDROCHLORIDE
     Indication: SEDATION
     Route: 065
  3. FENTANYL. [Concomitant]
     Active Substance: FENTANYL
     Indication: SEDATION
     Route: 065

REACTIONS (2)
  - Toxicity to various agents [Recovered/Resolved]
  - Seizure [Recovered/Resolved]
